FAERS Safety Report 9829945 (Version 3)
Quarter: 2014Q1

REPORT INFORMATION
  Report Type: Report from Study
  Country: KR (occurrence: KR)
  Receive Date: 20140120
  Receipt Date: 20140124
  Transmission Date: 20141002
  Serious: Yes (Hospitalization)
  Sender: FDA-Public Use
  Company Number: KR-BAYER-2014-006244

PATIENT
  Age: 50 Year
  Sex: Male
  Weight: 59.1 kg

DRUGS (9)
  1. NEXAVAR [Suspect]
     Indication: HEPATOCELLULAR CARCINOMA
     Dosage: DAILY DOSE 800 MG
     Route: 048
     Dates: start: 20131224, end: 20140111
  2. NEXAVAR [Suspect]
     Indication: HEPATOCELLULAR CARCINOMA
     Dosage: DAILY DOSE 400 MG
     Route: 048
     Dates: start: 20140120
  3. VIREAD [Concomitant]
     Dosage: DAILY DOSE 300 MG
     Route: 048
     Dates: start: 20131127
  4. LASIX [Concomitant]
     Dosage: DAILY DOSE 80 MG
     Route: 048
     Dates: start: 20130829
  5. SPIRONOLACTONE [Concomitant]
     Dosage: DAILY DOSE 200 MG
     Route: 048
     Dates: start: 20130829
  6. LEGALON [Concomitant]
     Dosage: DAILY DOSE 420 MG
     Route: 048
     Dates: start: 20130829
  7. URSA [Concomitant]
     Dosage: DAILY DOSE 300 MG
     Route: 048
     Dates: start: 20130829
  8. INDENOL [Concomitant]
     Dosage: DAILY DOSE 80 MG
     Route: 048
     Dates: start: 20131106
  9. BEECOM [Concomitant]
     Dosage: TOTAL DAILY DOSE: 3 TAB
     Route: 048
     Dates: start: 20131113

REACTIONS (1)
  - Hepatic encephalopathy [Recovered/Resolved]
